FAERS Safety Report 7626450-8 (Version None)
Quarter: 2011Q3

REPORT INFORMATION
  Report Type: 
  Country: None (occurrence: None)
  Receive Date: 20110721
  Receipt Date: 20110714
  Transmission Date: 20111222
  Serious: Yes (Other)
  Sender: FDA-Public Use
  Company Number: CA-PFIZER INC-2011160941

PATIENT
  Sex: Male

DRUGS (4)
  1. NEVANAC [Concomitant]
     Dosage: UNK
  2. MAXIDEX [Concomitant]
     Dosage: UNK
  3. XALATAN [Suspect]
     Indication: GLAUCOMA
     Dosage: 1 GTT IN LEFT EYE, 1X/DAY
     Route: 047
  4. MURO 128 [Concomitant]
     Dosage: UNK

REACTIONS (2)
  - INTRAOCULAR PRESSURE INCREASED [None]
  - CATARACT [None]
